FAERS Safety Report 5168887-5 (Version None)
Quarter: 2006Q4

REPORT INFORMATION
  Report Type: 
  Country: None (occurrence: None)
  Receive Date: 20061211
  Receipt Date: 20060511
  Transmission Date: 20070319
  Serious: Yes (Other)
  Sender: FDA-Public Use
  Company Number: FR-BAYER-200610437BFR

PATIENT
  Age: 59 Year
  Sex: Male

DRUGS (3)
  1. CIPROFLOXACIN [Suspect]
     Indication: EPIDIDYMITIS
     Route: 065
     Dates: start: 20060301, end: 20060301
  2. AUGMENTIN '125' [Concomitant]
     Indication: UNEVALUABLE EVENT
     Route: 065
  3. CEFTRIAXONE [Concomitant]
     Indication: UNEVALUABLE EVENT
     Route: 065

REACTIONS (2)
  - PAPILLOEDEMA [None]
  - PHOTOPSIA [None]
